FAERS Safety Report 7801300-5 (Version None)
Quarter: 2011Q4

REPORT INFORMATION
  Report Type: 
  Country: None (occurrence: None)
  Receive Date: 20111006
  Receipt Date: 20111006
  Transmission Date: 20120403
  Serious: Yes (Hospitalization)
  Sender: FDA-Public Use
  Company Number: None

PATIENT
  Age: 74 Year
  Sex: Male
  Weight: 110.6 kg

DRUGS (18)
  1. ACTOS [Concomitant]
  2. ALTACE [Concomitant]
  3. ASPIRIN [Suspect]
     Indication: CORONARY ARTERY DISEASE
     Dosage: 81MG X2 DAILY PO CHRONIC
     Route: 048
  4. COUMADIN [Suspect]
     Indication: CORONARY ARTERY DISEASE
     Dosage: 5MG MNF  ; 2.5 MG PO Q T, TH, S + S CHRONIC
     Route: 048
  5. VIT C [Concomitant]
  6. LIPITOR [Concomitant]
  7. NITROGLYCERIN [Concomitant]
  8. CARVEDILOL [Concomitant]
  9. ALDACTONE [Concomitant]
  10. VIT E [Concomitant]
  11. PLAVIX [Suspect]
     Indication: CORONARY ARTERY DISEASE
     Dosage: 75MG DAILY PO CHRONIC
     Route: 048
  12. CELEBREX [Suspect]
     Indication: ARTHRITIS
     Dosage: 200MG DAILY PO CHRONIC
     Route: 048
  13. TARONFORTE [Concomitant]
  14. NIASPAN [Concomitant]
  15. VIT B12 [Concomitant]
  16. PRIMIDONE [Concomitant]
  17. VIT D3 [Concomitant]
  18. ARTIFICIAL TEARS [Concomitant]

REACTIONS (3)
  - GASTRIC ULCER HAEMORRHAGE [None]
  - THROMBOCYTOPENIA [None]
  - INTERNATIONAL NORMALISED RATIO INCREASED [None]
